FAERS Safety Report 10173293 (Version 1)
Quarter: 2014Q2

REPORT INFORMATION
  Report Type: Spontaneous
  Country: US (occurrence: None)
  Receive Date: 20140514
  Receipt Date: 20140514
  Transmission Date: 20141212
  Serious: Yes (Other)
  Sender: FDA-Public Use
  Company Number: None

PATIENT
  Age: 8 Year
  Sex: Male
  Weight: 36.29 kg

DRUGS (1)
  1. CHILDREN^S ZYRTEC [Suspect]
     Indication: SEASONAL ALLERGY
     Dosage: 1 A DAY
     Route: 048

REACTIONS (2)
  - Drug withdrawal syndrome [None]
  - Rash [None]
